FAERS Safety Report 15392360 (Version 5)
Quarter: 2018Q4

REPORT INFORMATION
  Report Type: Spontaneous
  Country: DE (occurrence: DE)
  Receive Date: 20180917
  Receipt Date: 20181116
  Transmission Date: 20190204
  Serious: Yes (Other)
  Sender: FDA-Public Use
  Company Number: DE-PFIZER INC-2018369679

PATIENT
  Age: 72 Year
  Sex: Male

DRUGS (7)
  1. STOPHANTIN [Concomitant]
     Indication: PROPHYLAXIS
     Dosage: UNK
     Route: 065
  2. TURMERIC [CURCUMA LONGA RHIZOME] [Interacting]
     Active Substance: HERBALS\TURMERIC
     Dosage: UNK UNK, QD
     Route: 065
  3. MOTILIUM [Interacting]
     Active Substance: DOMPERIDONE
     Dosage: 10 MG, UNK
     Route: 065
  4. TASIGNA [Interacting]
     Active Substance: NILOTINIB
     Indication: CHRONIC MYELOID LEUKAEMIA
     Dosage: 400 MG, UNK
     Route: 048
  5. PANTOPRAZOLE [Suspect]
     Active Substance: PANTOPRAZOLE
     Dosage: UNK
  6. TASIGNA [Interacting]
     Active Substance: NILOTINIB
     Dosage: 600 MG, QD
     Route: 048
     Dates: start: 201402
  7. KLACID-MR [Interacting]
     Active Substance: CLARITHROMYCIN
     Indication: HELICOBACTER INFECTION
     Dosage: 500 MG, UNK
     Route: 065

REACTIONS (11)
  - Gait disturbance [Unknown]
  - Abdominal pain upper [Unknown]
  - Arthralgia [Unknown]
  - Helicobacter infection [Unknown]
  - Dyspepsia [Unknown]
  - Gastric ulcer [Unknown]
  - Burning sensation [Unknown]
  - Musculoskeletal chest pain [Unknown]
  - Gastritis [Unknown]
  - Sleep disorder [Unknown]
  - Drug interaction [Unknown]

NARRATIVE: CASE EVENT DATE: 2015
